FAERS Safety Report 7260089-1 (Version None)
Quarter: 2011Q1

REPORT INFORMATION
  Report Type: 
  Country: None (occurrence: None)
  Receive Date: 20110130
  Receipt Date: 20100917
  Transmission Date: 20110831
  Serious: No
  Sender: FDA-Public Use
  Company Number: US-ABBOTT-10P-163-0671675-00

PATIENT
  Age: 36 Year
  Sex: Male

DRUGS (3)
  1. PERCOCET [Concomitant]
     Indication: PAIN
     Dosage: 5/325MG THREE TIMES PER DAY
  2. HUMIRA [Suspect]
     Indication: CROHN'S DISEASE
     Dates: start: 20100601
  3. FLEXERIL [Concomitant]
     Indication: PAIN
     Dosage: 1 IN AM AND 1 IN PM, 10MG OR 20MG PER FAMILY

REACTIONS (4)
  - DEVICE MALFUNCTION [None]
  - INJECTION SITE PAIN [None]
  - DRUG INEFFECTIVE [None]
  - HEADACHE [None]
